FAERS Safety Report 17872385 (Version 1)
Quarter: 2020Q2

REPORT INFORMATION
  Report Type: Spontaneous
  Country: US (occurrence: US)
  Receive Date: 20200608
  Receipt Date: 20200608
  Transmission Date: 20200714
  Serious: No
  Sender: FDA-Public Use
  Company Number: US-KALA PHARAMACEUTICALS-2020KLA00019

PATIENT
  Sex: Female

DRUGS (3)
  1. INVELTYS [Suspect]
     Active Substance: LOTEPREDNOL ETABONATE
     Dosage: 3 DROPS PER DAY
  2. INVELTYS [Suspect]
     Active Substance: LOTEPREDNOL ETABONATE
     Dosage: 3 DROPS PER DAY
  3. INVELTYS [Suspect]
     Active Substance: LOTEPREDNOL ETABONATE
     Dosage: 2 DROPS PER DAY

REACTIONS (3)
  - Off label use [Not Recovered/Not Resolved]
  - Unevaluable event [Unknown]
  - Surgery [Recovered/Resolved]
